FAERS Safety Report 24653289 (Version 1)
Quarter: 2024Q4

REPORT INFORMATION
  Report Type: Spontaneous
  Country: CA (occurrence: CA)
  Receive Date: 20241122
  Receipt Date: 20241122
  Transmission Date: 20250115
  Serious: Yes (Other)
  Sender: EXELIXIS
  Company Number: CA-EXELIXIS-EXL-2024-002316

PATIENT
  Age: 54 Year
  Sex: Male

DRUGS (1)
  1. CABOMETYX [Suspect]
     Active Substance: CABOZANTINIB S-MALATE
     Indication: Clear cell renal cell carcinoma
     Dosage: 60 MG, QD

REACTIONS (4)
  - Serous retinal detachment [Recovered/Resolved]
  - Choroiditis [Recovered/Resolved]
  - Iridocyclitis [Unknown]
  - Neuropathy peripheral [Unknown]
